FAERS Safety Report 6082378-9 (Version None)
Quarter: 2009Q1

REPORT INFORMATION
  Report Type: 
  Country: None (occurrence: None)
  Receive Date: 20090130
  Receipt Date: 20080905
  Transmission Date: 20090719
  Serious: Yes (Death)
  Sender: FDA-Public Use
  Company Number: 8036971

PATIENT
  Age: 22 Year
  Sex: Male

DRUGS (4)
  1. KEPPRA [Suspect]
     Indication: CONVULSION
     Dosage: 500 MG 2/D
     Dates: start: 20080620, end: 20080718
  2. KEPPRA [Suspect]
     Indication: CONVULSION
     Dosage: 1000 MG 2/D
     Dates: start: 20080718, end: 20080815
  3. DILANTIN [Concomitant]
  4. XANAX [Concomitant]

REACTIONS (1)
  - COMPLETED SUICIDE [None]
